FAERS Safety Report 8905982 (Version 1)
Quarter: 2012Q4

REPORT INFORMATION
  Report Type: Report from Study
  Country: US (occurrence: US)
  Receive Date: 20121109
  Receipt Date: 20121109
  Transmission Date: 20130627
  Serious: Yes (Hospitalization)
  Sender: FDA-Public Use
  Company Number: US-GLAXOSMITHKLINE-A1000323A

PATIENT
  Age: 66 Year
  Sex: Female

DRUGS (19)
  1. LAPATINIB [Suspect]
     Indication: BREAST CANCER METASTATIC
     Dosage: 1000MG Per day
     Route: 048
     Dates: start: 20120424
  2. TRASTUZUMAB [Suspect]
     Indication: BREAST CANCER METASTATIC
     Route: 042
     Dates: start: 20120824
  3. AMBIEN [Concomitant]
  4. ASPIRIN [Concomitant]
  5. ATENOLOL [Concomitant]
  6. BACTRIM DS [Concomitant]
  7. BENAZEPRIL [Concomitant]
  8. CITRICAL+D [Concomitant]
  9. GABAPENTIN [Concomitant]
  10. GLIPIZIDE [Concomitant]
  11. HUMALOG [Concomitant]
  12. OMEPRAZOLE [Concomitant]
  13. OXYCODONE [Concomitant]
  14. SARNA [Concomitant]
  15. SILVER NITRATE [Concomitant]
  16. TRAMADOL [Concomitant]
  17. VALTREX [Concomitant]
  18. VITAMIN C [Concomitant]
  19. VITAMIN E [Concomitant]

REACTIONS (1)
  - Pleural effusion [Unknown]
